FAERS Safety Report 5514738-6 (Version None)
Quarter: 2007Q4

REPORT INFORMATION
  Report Type: 
  Country: None (occurrence: None)
  Receive Date: 20071113
  Receipt Date: 20071106
  Transmission Date: 20080405
  Serious: Yes (Other)
  Sender: FDA-Public Use
  Company Number: IT-SANOFI-SYNTHELABO-A06200700549

PATIENT
  Age: 58 Year
  Sex: Female

DRUGS (3)
  1. OXALIPLATIN [Suspect]
     Indication: COLON CANCER METASTATIC
     Route: 041
  2. FOLINIC ACID [Concomitant]
     Indication: COLON CANCER METASTATIC
     Route: 065
  3. FLUOROURACIL [Concomitant]
     Indication: COLON CANCER METASTATIC
     Route: 065

REACTIONS (6)
  - BRONCHOSPASM [None]
  - DYSARTHRIA [None]
  - DYSPNOEA [None]
  - EYELID PTOSIS [None]
  - LARYNGOSPASM [None]
  - PARAESTHESIA [None]
